FAERS Safety Report 7526285-0 (Version None)
Quarter: 2011Q2

REPORT INFORMATION
  Report Type: 
  Country: None (occurrence: None)
  Receive Date: 20110606
  Receipt Date: 20110601
  Transmission Date: 20111010
  Serious: Yes (Hospitalization)
  Sender: FDA-Public Use
  Company Number: GB-PFIZER INC-2011119283

PATIENT
  Age: 64 Year
  Sex: Male
  Weight: 68 kg

DRUGS (8)
  1. ATORVASTATIN CALCIUM [Suspect]
     Dosage: 80 MG, 1X/DAY
     Route: 048
     Dates: start: 20110301, end: 20110518
  2. CREON [Concomitant]
  3. PERINDOPRIL [Concomitant]
  4. ASPIRIN [Concomitant]
  5. BISOPROLOL FUMARATE [Concomitant]
  6. CLOPIDOGREL SULFATE [Concomitant]
  7. GLICLAZIDE [Concomitant]
  8. ENOXAPARIN [Concomitant]

REACTIONS (2)
  - PANCREATITIS ACUTE [None]
  - ABNORMAL LOSS OF WEIGHT [None]
